FAERS Safety Report 9924611 (Version 1)
Quarter: 2014Q1

REPORT INFORMATION
  Report Type: Spontaneous
  Country: US (occurrence: US)
  Receive Date: 20140226
  Receipt Date: 20140226
  Transmission Date: 20141002
  Serious: No
  Sender: FDA-Public Use
  Company Number: US-PFIZER INC-2014048246

PATIENT
  Age: 42 Year
  Sex: Male

DRUGS (4)
  1. LYRICA [Suspect]
     Indication: PAIN
     Dosage: 150 MG, 2X/DAY
     Dates: start: 20140113
  2. METHADONE [Concomitant]
     Dosage: 10 MG, FIVE TIMES DAY
     Route: 048
     Dates: start: 20131024
  3. AMITRIPTYLINE [Concomitant]
     Dosage: 10 MG, UNK
     Dates: start: 20131202
  4. CYMBALTA [Concomitant]
     Dosage: 60 MG, UNK
     Dates: start: 20131017

REACTIONS (1)
  - Pain [Unknown]
